FAERS Safety Report 10760602 (Version 6)
Quarter: 2017Q2

REPORT INFORMATION
  Report Type: Report from Study
  Country: DE (occurrence: DE)
  Receive Date: 20150204
  Receipt Date: 20170518
  Transmission Date: 20170829
  Serious: Yes (Hospitalization)
  Sender: FDA-Public Use
  Company Number: DE-ROCHE-1523191

PATIENT
  Age: 78 Year
  Sex: Female
  Weight: 86.5 kg

DRUGS (22)
  1. JANUVIA [Concomitant]
     Active Substance: SITAGLIPTIN PHOSPHATE
     Indication: DIABETES MELLITUS
     Route: 048
     Dates: start: 201408
  2. HUMALOG [Concomitant]
     Active Substance: INSULIN LISPRO
     Indication: DIABETES MELLITUS
     Route: 058
     Dates: start: 201408
  3. PACLITAXEL. [Concomitant]
     Active Substance: PACLITAXEL
     Indication: BREAST CANCER
     Dosage: DOSAGES BETWEEN 132 MG AND 172 MG
     Route: 042
     Dates: start: 20140924, end: 20141223
  4. RAMIPRIL. [Concomitant]
     Active Substance: RAMIPRIL
     Indication: HYPERTENSION
     Route: 048
     Dates: start: 201408
  5. TILIDIN [Concomitant]
     Active Substance: NALOXONE HYDROCHLORIDE\TILIDINE HYDROCHLORIDE
     Indication: OSTEOARTHRITIS
     Route: 048
     Dates: start: 201408
  6. BEVACIZUMAB [Suspect]
     Active Substance: BEVACIZUMAB
     Dosage: THE LAST DOSE PRIOR TO SAE WAS ON 17/DEC/2014.
     Route: 042
     Dates: start: 20141217, end: 20141217
  7. HUMALOG MIX [Concomitant]
     Active Substance: INSULIN LISPRO
     Indication: DIABETES MELLITUS
     Route: 058
     Dates: start: 201408
  8. SIMVASTATIN. [Concomitant]
     Active Substance: SIMVASTATIN
     Indication: HYPERCHOLESTEROLAEMIA
     Route: 048
     Dates: start: 201408
  9. TAVOR EXPIDET [Concomitant]
     Active Substance: LORAZEPAM
     Indication: AGITATION
     Route: 048
     Dates: start: 20141119, end: 20141119
  10. LAXANS (BISACODYL) [Concomitant]
     Active Substance: BISACODYL
     Indication: CONSTIPATION
     Dosage: AS REQUIRED
     Route: 048
     Dates: start: 201411
  11. XARELTO [Concomitant]
     Active Substance: RIVAROXABAN
     Indication: ATRIAL FIBRILLATION
     Route: 048
     Dates: start: 201408
  12. RANITIC [Concomitant]
     Active Substance: RANITIDINE HYDROCHLORIDE
     Route: 042
     Dates: start: 20140924, end: 20141223
  13. LYRICA [Concomitant]
     Active Substance: PREGABALIN
     Indication: POLYNEUROPATHY
     Route: 048
     Dates: start: 201408
  14. FENISTIL (GERMANY) [Concomitant]
     Route: 042
     Dates: start: 20140924, end: 20141223
  15. BEVACIZUMAB [Suspect]
     Active Substance: BEVACIZUMAB
     Route: 042
     Dates: start: 20141119
  16. MADOPAR [Concomitant]
     Active Substance: BENSERAZIDE HYDROCHLORIDE\LEVODOPA
     Indication: PARKINSON^S DISEASE
     Route: 048
     Dates: start: 201408
  17. BEVACIZUMAB [Suspect]
     Active Substance: BEVACIZUMAB
     Indication: BREAST CANCER
     Route: 042
     Dates: start: 20140924
  18. PANTOZOL [Concomitant]
     Active Substance: PANTOPRAZOLE SODIUM
     Indication: PROPHYLAXIS AGAINST GASTROINTESTINAL ULCER
     Route: 048
     Dates: start: 201408
  19. L-THYROXIN [Concomitant]
     Active Substance: LEVOTHYROXINE SODIUM
     Indication: HYPOTHYROIDISM
     Route: 048
     Dates: start: 201408
  20. TORASEMIDE [Concomitant]
     Active Substance: TORSEMIDE
     Indication: HYPERTENSION
     Route: 048
     Dates: start: 201408
  21. TORASEMIDE [Concomitant]
     Active Substance: TORSEMIDE
     Route: 048
     Dates: start: 201408
  22. ENTACAPONE. [Concomitant]
     Active Substance: ENTACAPONE
     Indication: PARKINSON^S DISEASE
     Route: 048
     Dates: start: 201408

REACTIONS (14)
  - Constipation [Recovered/Resolved]
  - General physical health deterioration [Recovered/Resolved]
  - Anal haemorrhage [Recovered/Resolved]
  - Polyneuropathy [Unknown]
  - Fatigue [Recovered/Resolved]
  - Sleep disorder [Unknown]
  - Circulatory collapse [Recovered/Resolved]
  - C-reactive protein increased [Recovered/Resolved]
  - Febrile neutropenia [Recovered/Resolved]
  - Nausea [Unknown]
  - Pneumonia [Recovered/Resolved]
  - Malaise [Recovered/Resolved]
  - Anaemia of malignant disease [Recovered/Resolved]
  - Leukopenia [Recovered/Resolved]

NARRATIVE: CASE EVENT DATE: 20141001
